FAERS Safety Report 6528576-9 (Version None)
Quarter: 2009Q4

REPORT INFORMATION
  Report Type: 
  Country: None (occurrence: None)
  Receive Date: 20091231
  Receipt Date: 20091213
  Transmission Date: 20100525
  Serious: Yes (Other)
  Sender: FDA-Public Use
  Company Number: GB-DEXPHARM-20080819

PATIENT
  Age: 23 Year
  Sex: Male

DRUGS (2)
  1. OMEPRAZOLE ACTIVE SUBSTANCES [Suspect]
     Indication: GASTRITIS
     Dosage: 20 MG MILLIGRAM(S), ORAL
     Route: 048
     Dates: start: 20080705, end: 20080707
  2. PARACETAMOL [Suspect]

REACTIONS (12)
  - ASPARTATE AMINOTRANSFERASE INCREASED [None]
  - BLOOD ALKALINE PHOSPHATASE INCREASED [None]
  - BLOOD BILIRUBIN INCREASED [None]
  - C-REACTIVE PROTEIN INCREASED [None]
  - CHROMATURIA [None]
  - ERYTHEMA [None]
  - GALLBLADDER DISORDER [None]
  - GAMMA-GLUTAMYLTRANSFERASE INCREASED [None]
  - MALAISE [None]
  - RASH [None]
  - THROAT TIGHTNESS [None]
  - WHITE BLOOD CELL COUNT INCREASED [None]
